FAERS Safety Report 4687141-9 (Version None)
Quarter: 2005Q2

REPORT INFORMATION
  Report Type: 
  Country: None (occurrence: None)
  Receive Date: 20050608
  Receipt Date: 20050601
  Transmission Date: 20051028
  Serious: Yes (Death)
  Sender: FDA-Public Use
  Company Number: USA-2005-0020434

PATIENT
  Age: 64 Year
  Sex: Male

DRUGS (9)
  1. OXYCONTIN [Suspect]
     Indication: PAIN
     Dosage: 40 MG, Q8H, ORAL
     Route: 048
     Dates: start: 20031101, end: 20050409
  2. HUMALOG [Concomitant]
  3. ACETYLSALICYLIC ACID SRT [Concomitant]
  4. LASIX [Concomitant]
  5. LISINOPRIL [Concomitant]
  6. LOPID [Concomitant]
  7. LORTAB [Concomitant]
  8. PREDNISONE [Concomitant]
  9. XANAX [Concomitant]

REACTIONS (3)
  - DIABETES MELLITUS [None]
  - DISEASE PROGRESSION [None]
  - INCORRECT DOSE ADMINISTERED [None]
